FAERS Safety Report 20181592 (Version 3)
Quarter: 2021Q4

REPORT INFORMATION
  Report Type: Report from Study
  Country: US (occurrence: US)
  Receive Date: 20211214
  Receipt Date: 20211231
  Transmission Date: 20220304
  Serious: No
  Sender: FDA-Public Use
  Company Number: US-BEH-2021139414

PATIENT
  Age: 52 Year
  Sex: Female
  Weight: 89.342 kg

DRUGS (1)
  1. HIZENTRA [Suspect]
     Active Substance: HUMAN IMMUNOGLOBULIN G
     Indication: Chronic inflammatory demyelinating polyradiculoneuropathy
     Dosage: 36 GRAM, QW
     Route: 058
     Dates: start: 20211202

REACTIONS (2)
  - Headache [Unknown]
  - Pyrexia [Unknown]

NARRATIVE: CASE EVENT DATE: 20211202
